FAERS Safety Report 6823215-1 (Version None)
Quarter: 2010Q3

REPORT INFORMATION
  Report Type: 
  Country: None (occurrence: None)
  Receive Date: 20100708
  Receipt Date: 20100706
  Transmission Date: 20110219
  Serious: Yes (Death)
  Sender: FDA-Public Use
  Company Number: US-GILEAD-2010-0027865

PATIENT
  Sex: Female
  Weight: 62.7 kg

DRUGS (15)
  1. LETAIRIS [Suspect]
     Indication: PULMONARY ARTERIAL HYPERTENSION
     Route: 048
     Dates: start: 20080414
  2. ISOSORBIDE DINITRATE [Concomitant]
  3. LASIX [Concomitant]
  4. RAMIPRIL [Concomitant]
  5. BYETTA [Concomitant]
  6. CALCIUM +D [Concomitant]
  7. PERCOCET [Concomitant]
  8. PLAVIX [Concomitant]
  9. DURAGESIC-100 [Concomitant]
  10. SPIRIVA [Concomitant]
  11. KLOR-CON [Concomitant]
  12. ADVAIR DISKUS 100/50 [Concomitant]
  13. XANAX [Concomitant]
  14. PREDNISONE [Concomitant]
  15. LIPITOR [Concomitant]

REACTIONS (1)
  - DEATH [None]
